FAERS Safety Report 20095802 (Version 1)
Quarter: 2021Q4

REPORT INFORMATION
  Report Type: Report from Study
  Country: BR (occurrence: BR)
  Receive Date: 20211122
  Receipt Date: 20211122
  Transmission Date: 20220303
  Serious: Yes (Other)
  Sender: FDA-Public Use
  Company Number: BR-NOVARTISPH-NVSC2021BR261289

PATIENT
  Sex: Female

DRUGS (3)
  1. PIQRAY [Suspect]
     Active Substance: ALPELISIB
     Indication: Product used for unknown indication
     Dosage: UNK (ABOUT A MONTH AGO)
     Route: 065
  2. AFINITOR [Suspect]
     Active Substance: EVEROLIMUS
     Indication: Product used for unknown indication
     Dosage: UNK (LESS THAN A MONTH AGO)
     Route: 065
  3. AROMASIN [Concomitant]
     Active Substance: EXEMESTANE
     Indication: Product used for unknown indication
     Dosage: UNK (ABOUT A MONTH AGO)
     Route: 065

REACTIONS (6)
  - Diabetes mellitus [Unknown]
  - Lymphoma [Unknown]
  - Toxicity to various agents [Unknown]
  - Adverse drug reaction [Unknown]
  - Malaise [Unknown]
  - Swelling [Unknown]
